FAERS Safety Report 15104263 (Version 1)
Quarter: 2018Q3

REPORT INFORMATION
  Report Type: Report from Study
  Country: BR (occurrence: BR)
  Receive Date: 20180703
  Receipt Date: 20180703
  Transmission Date: 20181010
  Serious: Yes (Other)
  Sender: FDA-Public Use
  Company Number: BR-JNJFOC-20180637416

PATIENT

DRUGS (1)
  1. REMICADE [Suspect]
     Active Substance: INFLIXIMAB
     Indication: ANKYLOSING SPONDYLITIS
     Route: 042

REACTIONS (4)
  - Herpes zoster [Recovered/Resolved]
  - Hypersensitivity [Recovered/Resolved]
  - Infection [Recovered/Resolved]
  - Cardiovascular disorder [Recovered/Resolved]
